FAERS Safety Report 5394858-X (Version None)
Quarter: 2007Q3

REPORT INFORMATION
  Report Type: 
  Country: None (occurrence: None)
  Receive Date: 20070723
  Receipt Date: 20070713
  Transmission Date: 20080115
  Serious: Yes (Hospitalization)
  Sender: FDA-Public Use
  Company Number: GR-ABBOTT-07P-066-0374659-00

PATIENT
  Age: 46 Year
  Sex: Male
  Weight: 95 kg

DRUGS (2)
  1. TARKA [Suspect]
     Indication: DRUG USE FOR UNKNOWN INDICATION
     Route: 048
     Dates: start: 20070425, end: 20070425
  2. ACETAMINOPHEN [Suspect]
     Indication: DRUG USE FOR UNKNOWN INDICATION
     Route: 048
     Dates: start: 20070425, end: 20070425

REACTIONS (2)
  - OVERDOSE [None]
  - SUICIDE ATTEMPT [None]
